FAERS Safety Report 8576857-X (Version None)
Quarter: 2012Q3

REPORT INFORMATION
  Report Type: 
  Country: None (occurrence: None)
  Receive Date: 20120807
  Receipt Date: 20120531
  Transmission Date: 20120928
  Serious: No
  Sender: FDA-Public Use
  Company Number: US-009507513-1208USA002618

PATIENT

DRUGS (3)
  1. CLARITIN-D 24 HOUR [Suspect]
     Indication: MEDICAL OBSERVATION
  2. CLARITIN-D 24 HOUR [Suspect]
     Indication: NASAL CONGESTION
  3. CLARITIN-D 24 HOUR [Suspect]
     Indication: RHINORRHOEA
     Dosage: 10 MG, QD
     Route: 048
     Dates: start: 20120328

REACTIONS (2)
  - HEADACHE [None]
  - NO THERAPEUTIC RESPONSE [None]
